FAERS Safety Report 5920143-0 (Version None)
Quarter: 2008Q4

REPORT INFORMATION
  Report Type: 
  Country: None (occurrence: None)
  Receive Date: 20081015
  Receipt Date: 20081015
  Transmission Date: 20090506
  Serious: Yes (Hospitalization)
  Sender: FDA-Public Use
  Company Number: None

PATIENT
  Age: 82 Year

DRUGS (1)
  1. MORPHINE [Suspect]
     Indication: PAIN
     Dosage: 2 MG PRN IV
     Route: 042
     Dates: start: 20081005, end: 20081007

REACTIONS (2)
  - CONFUSIONAL STATE [None]
  - RESTLESSNESS [None]
